FAERS Safety Report 23052343 (Version 2)
Quarter: 2023Q4

REPORT INFORMATION
  Report Type: Spontaneous
  Country: US (occurrence: US)
  Receive Date: 20231010
  Receipt Date: 20231103
  Transmission Date: 20240110
  Serious: No
  Sender: FDA-Public Use
  Company Number: US-Blueprint Medicines Corporation-1524

PATIENT
  Sex: Male

DRUGS (1)
  1. AYVAKIT [Suspect]
     Active Substance: AVAPRITINIB
     Indication: Gastrointestinal stromal tumour
     Route: 065
     Dates: start: 20230901

REACTIONS (8)
  - Headache [Unknown]
  - Asthenia [Unknown]
  - Nausea [Unknown]
  - Dysgeusia [Unknown]
  - Head discomfort [Unknown]
  - Influenza [Unknown]
  - Lower respiratory tract infection [Unknown]
  - Dizziness [Unknown]
